FAERS Safety Report 19414293 (Version 1)
Quarter: 2021Q2

REPORT INFORMATION
  Report Type: Spontaneous
  Country: GB (occurrence: GB)
  Receive Date: 20210615
  Receipt Date: 20210615
  Transmission Date: 20210717
  Serious: No
  Sender: FDA-Public Use
  Company Number: GB-LUPIN PHARMACEUTICALS INC.-2021-09338

PATIENT
  Age: 47 Year
  Sex: Male

DRUGS (2)
  1. LEVOTHYROXINE. [Suspect]
     Active Substance: LEVOTHYROXINE
     Dosage: 150 MICROGRAM, QD (TITRATED OVER NINE MONTHS)
     Route: 065
  2. LEVOTHYROXINE. [Suspect]
     Active Substance: LEVOTHYROXINE
     Indication: BLOOD THYROID STIMULATING HORMONE INCREASED
     Dosage: UNK (INITIAL DOSAGE NOT STATED)
     Route: 065

REACTIONS (4)
  - Hyperhidrosis [Unknown]
  - Palpitations [Unknown]
  - Insomnia [Unknown]
  - Temperature intolerance [Unknown]
